FAERS Safety Report 7071020-6 (Version None)
Quarter: 2010Q4

REPORT INFORMATION
  Report Type: 
  Country: None (occurrence: None)
  Receive Date: 20101027
  Receipt Date: 20101027
  Transmission Date: 20110411
  Serious: Yes (Hospitalization)
  Sender: FDA-Public Use
  Company Number: None

PATIENT
  Age: 49 Year
  Sex: Female
  Weight: 72.5755 kg

DRUGS (1)
  1. AMITRIPTYLINE HCL [Suspect]
     Indication: MIGRAINE
     Dosage: 50MG NIGHT
     Dates: start: 20100903, end: 20101020

REACTIONS (6)
  - AMNESIA [None]
  - HYPERTENSION [None]
  - MIGRAINE [None]
  - SUICIDAL IDEATION [None]
  - TREMOR [None]
  - WEIGHT INCREASED [None]
